FAERS Safety Report 8006633-8 (Version None)
Quarter: 2011Q4

REPORT INFORMATION
  Report Type: 
  Country: None (occurrence: None)
  Receive Date: 20111227
  Receipt Date: 20111027
  Transmission Date: 20120403
  Serious: No
  Sender: FDA-Public Use
  Company Number: US-BAYER-2011-105374

PATIENT
  Age: 93 Year
  Sex: Female

DRUGS (5)
  1. AVELOX [Suspect]
     Indication: PNEUMONIA
     Dosage: 400 MG, UNK
     Route: 042
     Dates: start: 20111019, end: 20111021
  2. LOVENOX [Concomitant]
  3. PRILOSEC [Concomitant]
  4. METOPROLOL TARTRATE [Concomitant]
  5. ROCEPHIN [Concomitant]

REACTIONS (2)
  - VESSEL PUNCTURE SITE REACTION [None]
  - VESSEL PUNCTURE SITE PRURITUS [None]
